FAERS Safety Report 10927015 (Version 6)
Quarter: 2015Q2

REPORT INFORMATION
  Report Type: Spontaneous
  Country: US (occurrence: US)
  Receive Date: 20150318
  Receipt Date: 20150625
  Transmission Date: 20150821
  Serious: Yes (Hospitalization, Disabling, Other)
  Sender: FDA-Public Use
  Company Number: US-009507513-1110USA00934

PATIENT
  Sex: Female
  Weight: 61.68 kg

DRUGS (5)
  1. FOSAMAX [Suspect]
     Active Substance: ALENDRONATE SODIUM
     Indication: OSTEOPOROSIS
     Dosage: 10 MG, UNK
     Route: 048
     Dates: start: 20000922, end: 200112
  2. ALENDRONATE SODIUM. [Suspect]
     Active Substance: ALENDRONATE SODIUM
     Indication: OSTEOPENIA
  3. CALCIUM (UNSPECIFIED) (+) VITAMIN D (UNSPECIFIED) [Concomitant]
     Active Substance: CALCIUM CARBONATE\VITAMIN D
     Indication: ROUTINE HEALTH MAINTENANCE
     Dosage: 2 DF, QD
     Dates: start: 1999
  4. FOSAMAX [Suspect]
     Active Substance: ALENDRONATE SODIUM
     Indication: OSTEOPENIA
     Dosage: 70 MG, QW
     Route: 048
     Dates: start: 200112, end: 200805
  5. ALENDRONATE SODIUM. [Suspect]
     Active Substance: ALENDRONATE SODIUM
     Indication: OSTEOPOROSIS
     Dosage: 70 MG, QW
     Route: 048
     Dates: start: 20080821, end: 20090905

REACTIONS (37)
  - Femur fracture [Unknown]
  - Medical device discomfort [Unknown]
  - Femur fracture [Unknown]
  - Vertebral lesion [Unknown]
  - Uterine leiomyoma [Unknown]
  - Fall [Unknown]
  - Iliotibial band syndrome [Unknown]
  - Back pain [Unknown]
  - Fall [Unknown]
  - Vertebrobasilar insufficiency [Unknown]
  - Postoperative fever [Unknown]
  - Haemorrhoids [Unknown]
  - Low turnover osteopathy [Unknown]
  - Hip arthroplasty [Unknown]
  - Groin pain [Not Recovered/Not Resolved]
  - Joint dislocation [Unknown]
  - Tendonitis [Recovering/Resolving]
  - Carpal tunnel syndrome [Unknown]
  - Parkinson^s disease [Unknown]
  - Breast disorder [Unknown]
  - Pain in extremity [Unknown]
  - Muscular weakness [Unknown]
  - Herpes zoster [Unknown]
  - Anxiety [Unknown]
  - Pain in extremity [Unknown]
  - Medical device removal [Unknown]
  - Osteoporosis [Unknown]
  - Osteoarthritis [Unknown]
  - Mixed incontinence [Unknown]
  - Anaemia postoperative [Unknown]
  - Constipation [Unknown]
  - Femur fracture [Recovered/Resolved]
  - Internal fixation of fracture [Unknown]
  - Impaired healing [Unknown]
  - Haematuria [Unknown]
  - Hypertension [Unknown]
  - Impaired healing [Unknown]

NARRATIVE: CASE EVENT DATE: 200406
